FAERS Safety Report 9268191 (Version 1)
Quarter: 2013Q2

REPORT INFORMATION
  Report Type: Spontaneous
  Country: US (occurrence: US)
  Receive Date: 20130502
  Receipt Date: 20130502
  Transmission Date: 20140414
  Serious: Yes (Hospitalization)
  Sender: FDA-Public Use
  Company Number: US-ALEXION PHARMACEUTICALS INC.-A201201801

PATIENT
  Age: 16 Year
  Sex: Female
  Weight: 46.6 kg

DRUGS (19)
  1. SOLIRIS 300MG [Suspect]
     Indication: HAEMOLYTIC URAEMIC SYNDROME
     Dosage: 1200 MG, QW
     Route: 042
     Dates: start: 20111206
  2. SOLIRIS 300MG [Suspect]
     Dosage: 1200 MG, Q2W
     Route: 042
     Dates: end: 20120719
  3. BACTRIM [Concomitant]
     Indication: PROPHYLAXIS
     Dosage: UNK
     Dates: start: 20120411
  4. PENICILLIN VK [Concomitant]
     Indication: PROPHYLAXIS
     Dosage: 250 MG, QD
     Dates: start: 20120411
  5. MENINGOCOCCAL VACCINES [Concomitant]
     Indication: IMMUNISATION
     Dosage: UNK
     Dates: start: 201206, end: 201206
  6. CELLCEPT [Concomitant]
     Dosage: 500 MG, BID
  7. PROGRAF [Suspect]
     Dosage: 1.5 MG, BID
  8. PREDNISONE [Concomitant]
     Dosage: 5 MG, QD
  9. ARANESP [Concomitant]
     Dosage: 25 MCG/0.42 ML, 1 ML Q OTHER WEEK
     Route: 030
  10. SODIUM BICARBONATE [Concomitant]
     Dosage: 1950 MG, TID
  11. MYFORTIC [Concomitant]
     Dosage: 360 MG, BID
  12. POLY-IRON [Concomitant]
     Dosage: 150 MG, QD
  13. CALCITRIOL [Concomitant]
     Dosage: 0.25 ?G, QD
  14. PROTONIX [Concomitant]
     Dosage: 40 MG, BID
  15. DEPOPROVERA [Concomitant]
     Dosage: UNK, Q 3 MONTHS
  16. MAGNESIUM OXIDE [Concomitant]
     Dosage: 400 MG, 3 X WEEK
  17. RENVELA [Concomitant]
     Dosage: 800 MG, QID
     Route: 048
  18. OMEPRAZOLE [Concomitant]
     Dosage: 20 MG, QD
     Route: 048
  19. FEXOFENADINE [Concomitant]
     Dosage: 180 MG, QD
     Route: 048

REACTIONS (7)
  - Hypovolaemia [Recovering/Resolving]
  - Dehydration [Recovering/Resolving]
  - Renal failure acute [Recovering/Resolving]
  - Gastroenteritis [Recovering/Resolving]
  - Diarrhoea [Recovering/Resolving]
  - Blood magnesium decreased [Unknown]
  - Drug level increased [Unknown]
